FAERS Safety Report 6187909-6 (Version None)
Quarter: 2009Q2

REPORT INFORMATION
  Report Type: 
  Country: None (occurrence: None)
  Receive Date: 20090511
  Receipt Date: 20090429
  Transmission Date: 20091009
  Serious: Yes (Life-Threatening, Hospitalization)
  Sender: FDA-Public Use
  Company Number: GXKR2009CH05269

PATIENT
  Age: 58 Year
  Sex: Female

DRUGS (11)
  1. VALPROIC ACID [Suspect]
     Indication: BIPOLAR DISORDER
     Dosage: 500 MG, BID, ORAL
     Route: 048
  2. EPIRUBICIN HCL [Suspect]
     Indication: BREAST CANCER FEMALE
     Dosage: 190 MG, ONE PER TOTAL, IV DRIP
     Route: 041
     Dates: start: 20090407, end: 20090407
  3. FLUOROURACIL [Suspect]
     Indication: BREAST CANCER FEMALE
     Dosage: 1000 MG, ONE PER TOTAL, IV DRIP
     Route: 041
     Dates: start: 20090407, end: 20090407
  4. CYCLOPHOSPHAMIDE [Suspect]
     Indication: BREAST CANCER FEMALE
     Dosage: 1000 MG, ONE PER TOTAL, IV DRIP
     Route: 041
     Dates: start: 20090407, end: 20090407
  5. ESCITALOPRAM [Concomitant]
  6. SEROQUEL (QUETIAPINE FUMARATE) FILM-COATED TABLET, 200 MG [Concomitant]
  7. ZOLPIDEM [Concomitant]
  8. LORAZEPAM [Concomitant]
  9. SOLU-MEDROL [Concomitant]
  10. APREIPTANT (APREPITANT) [Concomitant]
  11. ALOXI (PALONOSETRON HYDROCHLORIDE) , 0.05 MG [Concomitant]

REACTIONS (6)
  - AGRANULOCYTOSIS [None]
  - DIARRHOEA [None]
  - DRUG INTERACTION [None]
  - DRUG TOXICITY [None]
  - HAEMODYNAMIC INSTABILITY [None]
  - PANCYTOPENIA [None]
